FAERS Safety Report 10593398 (Version 2)
Quarter: 2014Q4

REPORT INFORMATION
  Report Type: Spontaneous
  Country: US (occurrence: US)
  Receive Date: 20141119
  Receipt Date: 20141217
  Transmission Date: 20150529
  Serious: No
  Sender: FDA-Public Use
  Company Number: US-PFIZER INC-2014316744

PATIENT
  Age: 86 Year
  Sex: Female

DRUGS (18)
  1. CITRACAL + D [Concomitant]
     Active Substance: CALCIUM CITRATE\VITAMIN D
     Dosage: UNK, 2X/DAY
     Dates: start: 20040525
  2. MOBIC [Concomitant]
     Active Substance: MELOXICAM
     Dosage: 15 MG, DAILY
     Dates: start: 20130807
  3. MOBIC [Concomitant]
     Active Substance: MELOXICAM
     Dosage: 15 MG, 1X/DAY
     Dates: start: 20141118
  4. LOPRESSOR [Concomitant]
     Active Substance: METOPROLOL TARTRATE
     Dosage: 50 MG, (0.5 TAB TWICE DAILY)
     Dates: start: 20120705
  5. LYRICA [Suspect]
     Active Substance: PREGABALIN
     Indication: PAIN
     Dosage: 50 MG, 2X/DAY
     Route: 048
     Dates: start: 20140828
  6. FORTEO [Concomitant]
     Active Substance: TERIPARATIDE
     Dosage: 600 ?G, DAILY (/2.4 ML 20MCG SOLUTION)
     Dates: start: 20140917
  7. ALBUTEROL SULFATE. [Concomitant]
     Active Substance: ALBUTEROL SULFATE
     Dosage: UNK, 0.083% INHALANT FOUR TIMES EACH DAY
     Dates: start: 20140512
  8. OMEPRAZOLE. [Concomitant]
     Active Substance: OMEPRAZOLE
     Dosage: 20 MG, 1X/DAY
     Dates: start: 20131218
  9. LIPITOR [Concomitant]
     Active Substance: ATORVASTATIN CALCIUM
     Dosage: 10 MG, 1X/DAY
     Dates: start: 20141103
  10. NORCO [Concomitant]
     Active Substance: ACETAMINOPHEN\HYDROCODONE BITARTRATE
     Dosage: HYDROCODONE BITARTRATE:PARACETAMOL (5:325 MG), 5-1 TABLET THREE TIMES DAILY PRN
     Dates: start: 20140709
  11. RANITIDINE [Concomitant]
     Active Substance: RANITIDINE\RANITIDINE HYDROCHLORIDE
     Dosage: 300 MG, 1 TABLET AT BED TIME
     Dates: start: 20140623
  12. PROAIR HFA [Concomitant]
     Active Substance: ALBUTEROL SULFATE
     Dosage: UNK, 2 INHALANT FOUR TIMES DAILY PRN
     Dates: start: 20140507
  13. ASPIRIN. [Concomitant]
     Active Substance: ASPIRIN
     Dosage: 81 MG, DAILY
     Dates: start: 20081124
  14. COZAAR [Concomitant]
     Active Substance: LOSARTAN POTASSIUM
     Dosage: 100 MG, 1X/DAY
     Dates: start: 20140818
  15. SIMVASTATIN. [Concomitant]
     Active Substance: SIMVASTATIN
     Dosage: 80 MG, 1X/DAY
     Dates: start: 20120705
  16. LYRICA [Suspect]
     Active Substance: PREGABALIN
     Indication: OSTEONECROSIS
  17. SYMBICORT [Concomitant]
     Active Substance: BUDESONIDE\FORMOTEROL FUMARATE DIHYDRATE
     Dosage: UNK, (160-4.5 MCG/ACT 2 INHALANT TWICE DAILY)
     Dates: start: 20120522
  18. LASIX [Concomitant]
     Active Substance: FUROSEMIDE
     Dosage: 40 MG, (1 3X WK PRN)
     Dates: start: 20110531

REACTIONS (5)
  - Product use issue [Unknown]
  - Dizziness [Unknown]
  - Osteoporosis [Unknown]
  - Confusional state [Unknown]
  - Asthenia [Unknown]
